FAERS Safety Report 6466778-0 (Version None)
Quarter: 2009Q4

REPORT INFORMATION
  Report Type: 
  Country: None (occurrence: None)
  Receive Date: 20091202
  Receipt Date: 20091123
  Transmission Date: 20100525
  Serious: Yes (Other)
  Sender: FDA-Public Use
  Company Number: GB-PURDUE-GBR-2009-0005297

PATIENT
  Sex: Male
  Weight: 60 kg

DRUGS (11)
  1. TARGINACT [Suspect]
     Indication: CANCER PAIN
     Dosage: 2 DF, BID
     Route: 048
     Dates: start: 20090210, end: 20090507
  2. MXL CAPSULES [Suspect]
     Indication: DRUG USE FOR UNKNOWN INDICATION
  3. OXYCONTIN [Suspect]
     Indication: DRUG USE FOR UNKNOWN INDICATION
     Dosage: 20 MG, BID
     Route: 065
  4. CO-DANTHRAMER CAPSULES [Concomitant]
     Indication: CONSTIPATION
     Dosage: 15 ML, TID
     Route: 048
     Dates: start: 20080923
  5. CYCLIZINE [Concomitant]
     Indication: NAUSEA
     Dosage: 50 MG, TID
     Route: 048
     Dates: start: 20081031
  6. FEXOFENADINE [Concomitant]
     Indication: HYPERSENSITIVITY
     Dosage: 180 MG, DAILY
     Route: 048
     Dates: start: 20030101
  7. HALOPERIDOL [Concomitant]
     Indication: NAUSEA
     Dosage: 1.5 MG, DAILY
     Route: 048
     Dates: start: 20081204
  8. INDORAMIN [Concomitant]
     Indication: PROSTATIC DISORDER
     Dosage: 20 MG, BID
     Route: 065
     Dates: start: 20010101
  9. SERETIDE                           /01420901/ [Concomitant]
     Dosage: UNK
     Route: 065
  10. ZOTON [Concomitant]
     Indication: DYSPEPSIA
     Dosage: 30 MG, DAILY
     Route: 048
     Dates: start: 20040101
  11. MEGASTROL                          /00082601/ [Concomitant]
     Indication: BACTERAEMIA

REACTIONS (9)
  - BACK PAIN [None]
  - BODY TEMPERATURE DECREASED [None]
  - CHEST PAIN [None]
  - CONSTIPATION [None]
  - DEFAECATION URGENCY [None]
  - DIARRHOEA [None]
  - FEELING COLD [None]
  - PAROSMIA [None]
  - WITHDRAWAL SYNDROME [None]
